FAERS Safety Report 8255202-3 (Version None)
Quarter: 2012Q2

REPORT INFORMATION
  Report Type: 
  Country: None (occurrence: None)
  Receive Date: 20120403
  Receipt Date: 20120327
  Transmission Date: 20120825
  Serious: Yes (Hospitalization, Other)
  Sender: FDA-Public Use
  Company Number: US-ELI_LILLY_AND_COMPANY-US201203008237

PATIENT
  Sex: Female

DRUGS (15)
  1. HYDROCHLOROTHIAZIDE [Concomitant]
  2. FORTEO [Suspect]
     Indication: OSTEOPOROSIS
     Dosage: 20 UG, QD
     Dates: start: 20100801
  3. SENOKOT [Concomitant]
  4. CALCIUM CARBONATE [Concomitant]
  5. DIOVAN [Concomitant]
  6. ASPIRIN [Concomitant]
  7. COLACE [Concomitant]
  8. OXYCODONE HCL [Concomitant]
     Indication: PAIN
  9. PERCOCET [Concomitant]
  10. NOVOLOG [Concomitant]
  11. LEVACET [Concomitant]
  12. SYNTHROID [Concomitant]
  13. OMEPRAZOLE [Concomitant]
  14. GABAPENTIN [Concomitant]
  15. LANTUS [Concomitant]

REACTIONS (3)
  - BLOOD IRON DECREASED [None]
  - UPPER LIMB FRACTURE [None]
  - FALL [None]
